FAERS Safety Report 6393630-1 (Version None)
Quarter: 2009Q4

REPORT INFORMATION
  Report Type: 
  Country: None (occurrence: None)
  Receive Date: 20091008
  Receipt Date: 20091005
  Transmission Date: 20100525
  Serious: Yes (Hospitalization, Other)
  Sender: FDA-Public Use
  Company Number: US-PFIZER INC-2009263378

PATIENT
  Age: 71 Year
  Sex: Male
  Weight: 83.9 kg

DRUGS (1)
  1. DETROL LA [Suspect]
     Indication: MICTURITION DISORDER
     Dosage: 4 MG, UNK
     Route: 048
     Dates: start: 20090723

REACTIONS (2)
  - CARDIAC DISORDER [None]
  - HEART RATE INCREASED [None]
